FAERS Safety Report 24193515 (Version 1)
Quarter: 2024Q3

REPORT INFORMATION
  Report Type: Spontaneous
  Country: US (occurrence: US)
  Receive Date: 20240809
  Receipt Date: 20240809
  Transmission Date: 20241017
  Serious: Yes (Other)
  Sender: RANBAXY
  Company Number: US-SUN PHARMACEUTICAL INDUSTRIES LTD-2024R1-461896

PATIENT
  Age: 55 Year
  Sex: Female

DRUGS (2)
  1. EPINEPHRINE [Suspect]
     Active Substance: EPINEPHRINE
     Indication: Superior vena cava syndrome
     Dosage: 0.3 MICROGRAM/KILOGRAM
     Route: 065
  2. NOREPINEPHRINE [Suspect]
     Active Substance: NOREPINEPHRINE\NOREPINEPHRINE BITARTRATE
     Indication: Superior vena cava syndrome
     Dosage: 0.3 MICROGRAM/KILOGRAM
     Route: 065

REACTIONS (1)
  - Therapy non-responder [Unknown]
